FAERS Safety Report 7951128-0 (Version None)
Quarter: 2011Q4

REPORT INFORMATION
  Report Type: 
  Country: None (occurrence: None)
  Receive Date: 20111123
  Receipt Date: 20111115
  Transmission Date: 20120403
  Serious: Yes (Hospitalization)
  Sender: FDA-Public Use
  Company Number: 2011SP016572

PATIENT
  Age: 35 Year
  Sex: Female
  Weight: 99.7913 kg

DRUGS (1)
  1. NUVARING [Suspect]
     Indication: CONTRACEPTION
     Dates: start: 20070601, end: 20080726

REACTIONS (9)
  - APPENDICECTOMY [None]
  - DEEP VEIN THROMBOSIS [None]
  - SINUS TACHYCARDIA [None]
  - PULMONARY EMBOLISM [None]
  - CHOLELITHIASIS [None]
  - PULMONARY HYPERTENSION [None]
  - DILATATION VENTRICULAR [None]
  - RIGHT ATRIAL DILATATION [None]
  - CHOLECYSTECTOMY [None]
